FAERS Safety Report 7928906 (Version 4)
Quarter: 2013Q4

REPORT INFORMATION
  Report Type: Spontaneous
  Country: US (occurrence: US)
  Receive Date: 20110503
  Receipt Date: 20131025
  Transmission Date: 20140711
  Serious: Yes (Hospitalization, Other)
  Sender: FDA-Public Use
  Company Number: US-BAYER-2011-035954

PATIENT
  Age: 28 Year
  Sex: Female
  Weight: 53.06 kg

DRUGS (7)
  1. MIRENA [Suspect]
     Indication: CONTRACEPTION
     Dosage: 20 ?G/D, CONT
     Route: 015
     Dates: start: 20100715, end: 20110506
  2. DOXYCYCLINE [Concomitant]
  3. KEFLEX [Concomitant]
  4. ZOFRAN [Concomitant]
  5. HYDROCODONE [Concomitant]
  6. PHENERGAN [Concomitant]
  7. TORADOL [Concomitant]

REACTIONS (16)
  - Device dislocation [None]
  - Pain [None]
  - Device breakage [None]
  - Device difficult to use [None]
  - Pregnancy with contraceptive device [None]
  - Abdominal pain [None]
  - Nausea [None]
  - Vomiting [None]
  - Imminent abortion [None]
  - Injury [None]
  - Emotional distress [None]
  - Anxiety [None]
  - Depression [None]
  - Scar [None]
  - Drug ineffective [None]
  - Device misuse [None]
